FAERS Safety Report 11520207 (Version 1)
Quarter: 2015Q3

REPORT INFORMATION
  Report Type: Spontaneous
  Country: US (occurrence: US)
  Receive Date: 20150918
  Receipt Date: 20150918
  Transmission Date: 20151125
  Serious: No
  Sender: FDA-Public Use
  Company Number: US-RB-074031-15

PATIENT

DRUGS (1)
  1. MUCINEX MAXIMUM STRENGTH [Suspect]
     Active Substance: GUAIFENESIN
     Indication: PRODUCT USED FOR UNKNOWN INDICATION
     Dosage: 2400MG. TOOK 2 TABLETS INSTEAD OF 1,FREQUENCY UNK
     Route: 065
     Dates: start: 20150103

REACTIONS (2)
  - No adverse event [Unknown]
  - Accidental overdose [Unknown]
